APPROVED DRUG PRODUCT: ATORVASTATIN CALCIUM
Active Ingredient: ATORVASTATIN CALCIUM
Strength: EQ 80MG BASE 
Dosage Form/Route: TABLET;ORAL
Application: A207687 | Product #004 | TE Code: AB
Applicant: ACCORD HEALTHCARE INC
Approved: Mar 30, 2018 | RLD: No | RS: No | Type: RX